FAERS Safety Report 6852873-0 (Version None)
Quarter: 2010Q3

REPORT INFORMATION
  Report Type: 
  Country: None (occurrence: None)
  Receive Date: 20100717
  Receipt Date: 20080117
  Transmission Date: 20110219
  Serious: No
  Sender: FDA-Public Use
  Company Number: US-PFIZER INC-2007098873

PATIENT
  Sex: Female
  Weight: 81.818 kg

DRUGS (2)
  1. CHANTIX [Suspect]
     Indication: SMOKING CESSATION THERAPY
     Route: 048
     Dates: start: 20071113
  2. VESICARE [Concomitant]
     Indication: HYPERTONIC BLADDER

REACTIONS (3)
  - DIZZINESS [None]
  - MOTION SICKNESS [None]
  - NAUSEA [None]
